FAERS Safety Report 11868688 (Version 2)
Quarter: 2016Q2

REPORT INFORMATION
  Report Type: Report from Study
  Country: US (occurrence: US)
  Receive Date: 20151225
  Receipt Date: 20160502
  Transmission Date: 20160815
  Serious: No
  Sender: FDA-Public Use
  Company Number: US-AMGEN-USASL2015137199

PATIENT
  Age: 45 Year
  Sex: Female

DRUGS (1)
  1. ENBREL [Suspect]
     Active Substance: ETANERCEPT
     Indication: RHEUMATOID ARTHRITIS
     Dosage: 50 MG, QWK
     Route: 065
     Dates: start: 20151212

REACTIONS (5)
  - Abdominal distension [Unknown]
  - Injection site reaction [Unknown]
  - Erythema [Recovered/Resolved]
  - Fatigue [Unknown]
  - Injection site pain [Not Recovered/Not Resolved]
